FAERS Safety Report 17888166 (Version 1)
Quarter: 2020Q2

REPORT INFORMATION
  Report Type: Spontaneous
  Country: NL (occurrence: NL)
  Receive Date: 20200612
  Receipt Date: 20200612
  Transmission Date: 20200714
  Serious: Yes (Other)
  Sender: FDA-Public Use
  Company Number: NL-TEVA-2020-NL-1246655

PATIENT
  Age: 36 Year
  Sex: Female

DRUGS (9)
  1. FOSAMAX [Concomitant]
     Active Substance: ALENDRONATE SODIUM
     Dosage: 20 MG 1 WK
     Dates: start: 20030115, end: 20040115
  2. FUNGIZONE ZUIGTABLET [Concomitant]
     Dosage: 3 DD 10 MG, UNIT DOSE: 30 MG
     Dates: start: 20030115, end: 20040115
  3. FUNGIZONE SUSPENSIE [Concomitant]
     Dosage: 3 DD 1 CC, UNIT DOSE: 3 ML, FORM OF ADMIN. TEXT : SUSPENSION
     Dates: start: 20030115, end: 20040115
  4. LOSEC [Concomitant]
     Active Substance: OMEPRAZOLE
     Dosage: 40 MILLIGRAM DAILY;  THERAPY END DATE : ASKED BUT UNKNOWN
     Dates: start: 20030115
  5. PREDNISOLON TABLET 30MG [Suspect]
     Active Substance: PREDNISOLONE
     Indication: NEPHROTIC SYNDROME
     Dosage: 60 MILLIGRAM DAILY; PHASED OUT LATER
     Route: 065
     Dates: start: 20030115, end: 20040215
  6. VENTOLIN [Concomitant]
     Active Substance: ALBUTEROL SULFATE
     Dosage: AS REQUIRED,   THERAPY START DATE: ASKED BUT UNKNOWN, THERAPY END DATE : ASKED BUT UNKNOWN
  7. AERIUS (DESLORATADINE) [Concomitant]
     Active Substance: DESLORATADINE
     Dosage: ANNUALLY FROM MARCH TO SEPTEMBER ONCE A DAY AS NEEDED, UNIT DOSE: 5 MG,  THERAPY START DATE: ASKED B
  8. FUROSEMIDE. [Concomitant]
     Active Substance: FUROSEMIDE
     Dosage: 2 DD 40 MG, UNIT DOSE: 80 MG,  THERAPY END DATE : ASKED BUT UNKNOWN
     Dates: start: 20030115
  9. CALCI-CHEW [Concomitant]
     Dosage: 3 DD 500 MG, UNIT DOSE: 1500 MG, THERAPY END DATE : ASKED BUT UNKNOWN
     Dates: start: 20030115

REACTIONS (7)
  - Mood swings [Recovered/Resolved]
  - Somnolence [Recovered/Resolved]
  - Coordination abnormal [Recovered/Resolved]
  - Abdominal distension [Recovered/Resolved]
  - Face oedema [Recovered/Resolved]
  - Disturbance in attention [Recovered/Resolved]
  - Alopecia [Recovered/Resolved]
